FAERS Safety Report 20802593 (Version 1)
Quarter: 2022Q2

REPORT INFORMATION
  Report Type: Spontaneous
  Country: US (occurrence: None)
  Receive Date: 20220509
  Receipt Date: 20220509
  Transmission Date: 20220721
  Serious: No
  Sender: FDA-Public Use
  Company Number: None

PATIENT
  Age: 47 Year
  Sex: Female
  Weight: 75.6 kg

DRUGS (7)
  1. VUITY [Suspect]
     Active Substance: PILOCARPINE HYDROCHLORIDE
     Indication: Vision blurred
     Dosage: FREQUENCY : DAILY; 1 DROP?
     Route: 047
     Dates: start: 20220506, end: 20220506
  2. ESTRADIOL [Concomitant]
     Active Substance: ESTRADIOL
  3. TESTOSTERONE [Concomitant]
     Active Substance: TESTOSTERONE
  4. PROGESTERONE [Concomitant]
     Active Substance: PROGESTERONE
  5. MULTI-VITAMIN [Concomitant]
     Active Substance: .ALPHA.-TOCOPHEROL ACETATE, DL-\ASCORBIC ACID\CYANOCOBALAMIN\FLUORIDE ION\FOLIC ACID\NIACIN\PYRIDOXI
  6. BIOTIN [Concomitant]
     Active Substance: BIOTIN
  7. COLLAGEN [Concomitant]
     Active Substance: COLLAGEN

REACTIONS (6)
  - Headache [None]
  - Vision blurred [None]
  - Vertigo [None]
  - Disturbance in attention [None]
  - Nausea [None]
  - Pyrexia [None]

NARRATIVE: CASE EVENT DATE: 20220506
